FAERS Safety Report 7474640-X (Version None)
Quarter: 2011Q1

REPORT INFORMATION
  Report Type: 
  Country: None (occurrence: None)
  Receive Date: 20110302
  Receipt Date: 20100715
  Transmission Date: 20110831
  Serious: Yes (Hospitalization)
  Sender: FDA-Public Use
  Company Number: 163-21880-10040038

PATIENT
  Age: 73 Year
  Sex: Male

DRUGS (3)
  1. REVLIMID [Suspect]
     Indication: MULTIPLE MYELOMA
     Dosage: 25 MG, DAILY X 21 DAYS, PO; 25 MG, DAILY X 21 DAYS, PO
     Route: 048
     Dates: start: 20081101
  2. REVLIMID [Suspect]
     Indication: MULTIPLE MYELOMA
     Dosage: 25 MG, DAILY X 21 DAYS, PO; 25 MG, DAILY X 21 DAYS, PO
     Route: 048
     Dates: start: 20080201
  3. STEROID (CORTICOSTEROIDS) [Concomitant]

REACTIONS (7)
  - VARICELLA [None]
  - STAPHYLOCOCCAL SEPSIS [None]
  - WHITE BLOOD CELL COUNT DECREASED [None]
  - STAPHYLOCOCCAL INFECTION [None]
  - CARDIAC VALVE ABSCESS [None]
  - ENDOCARDITIS [None]
  - MALNUTRITION [None]
